FAERS Safety Report 17401730 (Version 1)
Quarter: 2020Q1

REPORT INFORMATION
  Report Type: Spontaneous
  Country: US (occurrence: US)
  Receive Date: 20200209
  Receipt Date: 20200209
  Transmission Date: 20200409
  Serious: Yes (Disabling)
  Sender: FDA-Public Use
  Company Number: None

PATIENT
  Age: 42 Year
  Sex: Male
  Weight: 87.75 kg

DRUGS (4)
  1. D EXTROAMPHETAMINE SULFATE 10MG NDC 13107003601 [Suspect]
     Active Substance: DEXTROAMPHETAMINE SULFATE
     Indication: ATTENTION DEFICIT/HYPERACTIVITY DISORDER
     Dosage: ?          QUANTITY:2 TABLET(S);?
     Route: 048
     Dates: start: 20181020, end: 20200120
  2. AVAR [Concomitant]
     Active Substance: SULFACETAMIDE SODIUM\SULFUR
  3. METROGEL TOPICAL [Concomitant]
  4. ORACIA [Concomitant]

REACTIONS (15)
  - Headache [None]
  - Rash [None]
  - Seborrhoea [None]
  - Drug ineffective [None]
  - Lethargy [None]
  - Product substitution issue [None]
  - Manufacturing facilities issue [None]
  - Product quality control issue [None]
  - Product complaint [None]
  - Anxiety [None]
  - Fatigue [None]
  - Rash pustular [None]
  - Product contamination [None]
  - Skin irritation [None]
  - Rosacea [None]

NARRATIVE: CASE EVENT DATE: 20200120
